FAERS Safety Report 12878635 (Version 2)
Quarter: 2016Q4

REPORT INFORMATION
  Report Type: Report from Study
  Country: None (occurrence: US)
  Receive Date: 20161024
  Receipt Date: 20161111
  Transmission Date: 20170207
  Serious: Yes (Other)
  Sender: FDA-Public Use
  Company Number: US-ABBVIE-16K-163-1757354-00

PATIENT
  Age: 54 Year
  Sex: Female

DRUGS (3)
  1. HUMIRA [Suspect]
     Active Substance: ADALIMUMAB
     Indication: RHEUMATOID ARTHRITIS
     Route: 058
     Dates: start: 20151012, end: 20160831
  2. METHOTREXATE. [Suspect]
     Active Substance: METHOTREXATE
     Indication: RHEUMATOID ARTHRITIS
     Route: 065
     Dates: end: 20160831
  3. CEPHALEXIN. [Suspect]
     Active Substance: CEPHALEXIN
     Indication: PRODUCT USED FOR UNKNOWN INDICATION
     Route: 065

REACTIONS (16)
  - Spinal cord compression [Recovering/Resolving]
  - Muscle injury [Recovering/Resolving]
  - Paraesthesia [Recovering/Resolving]
  - Nausea [Recovered/Resolved]
  - Joint range of motion decreased [Recovering/Resolving]
  - Muscle spasms [Recovered/Resolved]
  - Irritability [Recovered/Resolved]
  - Vertebral osteophyte [Recovering/Resolving]
  - Hypoaesthesia [Recovering/Resolving]
  - Intervertebral disc compression [Not Recovered/Not Resolved]
  - Pain [Recovering/Resolving]
  - Crohn^s disease [Not Recovered/Not Resolved]
  - Musculoskeletal pain [Unknown]
  - Spinal cord compression [Recovering/Resolving]
  - Arthritis [Recovering/Resolving]
  - Pain in extremity [Unknown]

NARRATIVE: CASE EVENT DATE: 20151012
